FAERS Safety Report 5722904-X (Version None)
Quarter: 2008Q2

REPORT INFORMATION
  Report Type: 
  Country: None (occurrence: None)
  Receive Date: 20080425
  Receipt Date: 20080417
  Transmission Date: 20081010
  Serious: Yes (Hospitalization, Other)
  Sender: FDA-Public Use
  Company Number: PHBS2008EC02093

PATIENT
  Age: 43 Year
  Sex: Male

DRUGS (3)
  1. CATAFLAM [Suspect]
     Indication: ARTHRALGIA
     Dosage: 2 TABLETS/DAY, ORAL
     Route: 048
     Dates: start: 20080119, end: 20080201
  2. ZURCAL(PANTOPRAZOLE) TABLET [Suspect]
     Dosage: 40 MG, QD, ORAL
     Route: 048
  3. ACETAMINOPHEN (PARACETAMOL),CHLORPHENIRAM,DEXTROMETHORPHAN HBR (NCH)(P [Suspect]
     Indication: PHARYNGITIS
     Dosage: UP TO 6 TABLETS/DAY, ORAL
     Route: 048
     Dates: start: 20080119, end: 20080201

REACTIONS (4)
  - ASTHENIA [None]
  - GASTRIC HAEMORRHAGE [None]
  - GASTRITIS [None]
  - MELAENA [None]
